FAERS Safety Report 17008495 (Version 1)
Quarter: 2019Q4

REPORT INFORMATION
  Report Type: Spontaneous
  Country: US (occurrence: US)
  Receive Date: 20191108
  Receipt Date: 20191108
  Transmission Date: 20200122
  Serious: Yes (Hospitalization, Other)
  Sender: FDA-Public Use
  Company Number: US-ACCORD-160231

PATIENT
  Age: 46 Year
  Sex: Female

DRUGS (3)
  1. GLIMEPIRIDE. [Suspect]
     Active Substance: GLIMEPIRIDE
     Indication: PRODUCT USED FOR UNKNOWN INDICATION
     Dosage: STRENGTH 4 MG
  2. LURASIDONE [Concomitant]
     Active Substance: LURASIDONE
     Dosage: STRENGTH 80 MG ,{ 30 TABLETS
  3. VALPROIC ACID. [Concomitant]
     Active Substance: VALPROIC ACID
     Dosage: STRENGTH 250 MG ,{ 30 TABLETS

REACTIONS (4)
  - Intentional overdose [Unknown]
  - Blood insulin increased [Recovered/Resolved]
  - Drug level increased [Recovered/Resolved]
  - Hypoglycaemia [Recovered/Resolved]
